FAERS Safety Report 5463029-0 (Version None)
Quarter: 2007Q3

REPORT INFORMATION
  Report Type: 
  Country: None (occurrence: None)
  Receive Date: 20070918
  Receipt Date: 20070918
  Transmission Date: 20080115
  Serious: Yes (Hospitalization)
  Sender: FDA-Public Use
  Company Number: None

PATIENT
  Sex: Male

DRUGS (9)
  1. REVLIMID [Suspect]
     Indication: MYELOFIBROSIS
     Dosage: 5MG DAILY PO
     Route: 048
  2. PROCRIT [Concomitant]
  3. ALLOPURINOL [Concomitant]
  4. TEMAZEPAM [Concomitant]
  5. PENTOXIFYLLINE [Concomitant]
  6. OMEPRAZOLE [Concomitant]
  7. FLUOXETINE [Concomitant]
  8. NIFEDIPINE [Concomitant]
  9. HYDROCHLOROTHIAZIDE [Concomitant]

REACTIONS (5)
  - CARDIAC FAILURE CONGESTIVE [None]
  - CELLULITIS STAPHYLOCOCCAL [None]
  - INFECTION IN AN IMMUNOCOMPROMISED HOST [None]
  - MYOSITIS [None]
  - PANCYTOPENIA [None]
